FAERS Safety Report 5312916-2 (Version None)
Quarter: 2007Q1

REPORT INFORMATION
  Report Type: 
  Country: None (occurrence: None)
  Receive Date: 20070201
  Receipt Date: 20061206
  Transmission Date: 20070707
  Serious: Yes (Other)
  Sender: FDA-Public Use
  Company Number: VNL_0329_2006

PATIENT
  Sex: Female

DRUGS (4)
  1. APOKYN [Suspect]
     Dosage: 0.3 ML 5XD SC
     Route: 058
     Dates: start: 20061020, end: 20060101
  2. APOKYN [Suspect]
     Dosage: 0.3 ML 2X/DAY SC
     Route: 058
     Dates: start: 20060101, end: 20060101
  3. APOKYN [Suspect]
     Dosage: 0.3 ML TID SC
     Route: 058
     Dates: start: 20060101, end: 20060101
  4. APOKYN [Suspect]
     Dosage: 0.3 ML 5XD SC
     Route: 058
     Dates: start: 20060101

REACTIONS (1)
  - HALLUCINATION [None]
